FAERS Safety Report 19635441 (Version 1)
Quarter: 2021Q3

REPORT INFORMATION
  Report Type: Spontaneous
  Country: CA (occurrence: CA)
  Receive Date: 20210729
  Receipt Date: 20210729
  Transmission Date: 20211014
  Serious: Yes (Death)
  Sender: FDA-Public Use
  Company Number: CA-B.BRAUN MEDICAL INC.-2114426

PATIENT
  Age: 80 Year
  Sex: Male
  Weight: 69 kg

DRUGS (47)
  1. AMIODARONE HYDROCHLORIDE. [Suspect]
     Active Substance: AMIODARONE HYDROCHLORIDE
     Route: 042
  2. LANSOPRAZOLE. [Suspect]
     Active Substance: LANSOPRAZOLE
     Route: 048
  3. SODIUM PHOSPHATE, MONOBASIC, UNSPECIFIED FORM [Suspect]
     Active Substance: SODIUM PHOSPHATE, MONOBASIC, UNSPECIFIED FORM
     Route: 054
  4. ONDANSETRON [Suspect]
     Active Substance: ONDANSETRON
     Route: 042
  5. VASOPRESSIN. [Suspect]
     Active Substance: VASOPRESSIN
     Route: 042
  6. BETAMETHASONE. [Suspect]
     Active Substance: BETAMETHASONE
     Route: 061
  7. CALCITRIOL. [Suspect]
     Active Substance: CALCITRIOL
     Route: 048
  8. DISTIGMINE BROMIDE [Suspect]
     Active Substance: DISTIGMINE BROMIDE
     Route: 048
  9. INSULIN ASPART PROTAMINE AND INSULIN ASPART [Suspect]
     Active Substance: INSULIN ASPART
     Route: 058
  10. LANTHANUM CARBONATE. [Suspect]
     Active Substance: LANTHANUM CARBONATE
     Route: 048
  11. MELATONIN [Suspect]
     Active Substance: MELATONIN
     Route: 048
  12. SIMVASTATIN. [Suspect]
     Active Substance: SIMVASTATIN
     Route: 048
  13. SODIUM CITRATE DIHYDRATE/WATER FOR INJECTION [Suspect]
     Active Substance: TRISODIUM CITRATE DIHYDRATE
  14. VILANTEROL TRIFENATATE [Suspect]
     Active Substance: VILANTEROL TRIFENATATE
  15. DEXTROSE INJECTIONS USP 0264?7510?00 0264?7510?20 [Suspect]
     Active Substance: DEXTROSE
     Indication: NUTRITIONAL SUPPLEMENTATION
     Route: 042
  16. METRONIDAZOLE. [Suspect]
     Active Substance: METRONIDAZOLE
     Route: 048
  17. PHYTONADIONE. [Suspect]
     Active Substance: PHYTONADIONE
     Route: 042
  18. POTASSIUM CHLORIDE. [Suspect]
     Active Substance: POTASSIUM CHLORIDE
  19. ATROVENT [Suspect]
     Active Substance: IPRATROPIUM BROMIDE
  20. BIOTIN/DOCOSAHEXAENOIC ACID/FOLIC ACID/IODINE/IRON/MAGNESIUM/NICOTINIC (DOCONEXENT\MINERALS\VITAMINS) [Suspect]
     Active Substance: DOCONEXENT\MINERALS\VITAMINS
     Route: 042
  21. BISACODYL. [Suspect]
     Active Substance: BISACODYL
     Route: 054
  22. INSULIN DEGLUDEC [Suspect]
     Active Substance: INSULIN DEGLUDEC
     Route: 058
  23. ACETAMINOPHEN. [Suspect]
     Active Substance: ACETAMINOPHEN
     Route: 048
  24. GABAPENTIN. [Suspect]
     Active Substance: GABAPENTIN
     Route: 048
  25. IPRATROPIUM [Suspect]
     Active Substance: IPRATROPIUM
     Route: 055
  26. MACROGOL 3350 [Suspect]
     Active Substance: POLYETHYLENE GLYCOL 3350
     Route: 048
  27. PREVACID [Suspect]
     Active Substance: LANSOPRAZOLE
  28. PYRIDOXINE HYDROCHLORIDE. [Suspect]
     Active Substance: PYRIDOXINE HYDROCHLORIDE
     Route: 048
  29. UMECLIDINIUM BROMIDE/VILANTEROL TRIFENATATE [Suspect]
     Active Substance: UMECLIDINIUM BROMIDE\VILANTEROL TRIFENATATE
     Route: 048
  30. BETA?CAROTENE/CITRIC ACID/LYCIUM BARBARUM/MALTODEXTRIN/VACCINIUM MYTRT (NUTRITIONAL SUPPLEMENTATION) [Suspect]
     Active Substance: DIETARY SUPPLEMENT\HERBALS
     Route: 042
  31. CEFTRIAXONE SODIUM. [Suspect]
     Active Substance: CEFTRIAXONE SODIUM
     Route: 042
  32. DALTEPARIN SODIUM [Suspect]
     Active Substance: DALTEPARIN SODIUM
  33. HEPARIN SODIUM. [Suspect]
     Active Substance: HEPARIN SODIUM
     Route: 042
  34. HYDROMORPHONE HYDROCHLORIDE. [Suspect]
     Active Substance: HYDROMORPHONE HYDROCHLORIDE
     Route: 058
  35. SODIUM CITRATE. [Suspect]
     Active Substance: SODIUM CITRATE
  36. SODIUM FERRIC GLUCONATE COMPLEX. [Suspect]
     Active Substance: SODIUM FERRIC GLUCONATE COMPLEX
     Route: 042
  37. UMECLIDINIUM BROMIDE [Suspect]
     Active Substance: UMECLIDINIUM BROMIDE
     Route: 048
  38. ALLOPURINOL. [Suspect]
     Active Substance: ALLOPURINOL
     Route: 048
  39. ARANESP [Suspect]
     Active Substance: DARBEPOETIN ALFA
     Route: 042
  40. DOBUTAMINE HYDROCHLORIDE. [Suspect]
     Active Substance: DOBUTAMINE HYDROCHLORIDE
     Route: 042
  41. FLUTICASONE FUROATE [Suspect]
     Active Substance: FLUTICASONE FUROATE
  42. MACROGOL 3350/POTASSIUM CHLORIDE/SODIUM ASCORBATE/SODIUM CHLORIDE/SODI [ELECTROLYTES NOS\POLYETHYLENE GLYCOL 3350] [Suspect]
     Active Substance: ELECTROLYTES NOS\POLYETHYLENE GLYCOL 3350
     Route: 048
  43. NOREPINEPHRINE BITARTRATE. [Suspect]
     Active Substance: NOREPINEPHRINE BITARTRATE
     Route: 042
  44. SODIUM PHOSPHATE MONOBASIC [Suspect]
     Active Substance: SODIUM PHOSPHATE, MONOBASIC
     Route: 054
  45. SODIUM PICOSULFATE [Suspect]
     Active Substance: SODIUM PICOSULFATE
     Route: 054
  46. SALBUTAMOL [Suspect]
     Active Substance: ALBUTEROL
     Route: 055
  47. WARFARIN [Suspect]
     Active Substance: WARFARIN
     Route: 048

REACTIONS (15)
  - Ascites [None]
  - Sepsis [None]
  - General physical health deterioration [None]
  - Stress [None]
  - Vomiting [None]
  - Hyponatraemia [None]
  - Nausea [None]
  - Abdominal pain [None]
  - Off label use [None]
  - Abdominal distension [None]
  - Appendicitis [None]
  - Multiple organ dysfunction syndrome [None]
  - Appendicolith [None]
  - Constipation [None]
  - Cardiogenic shock [None]
